FAERS Safety Report 10047037 (Version 1)
Quarter: 2014Q1

REPORT INFORMATION
  Report Type: Spontaneous
  Country: US (occurrence: None)
  Receive Date: 20140328
  Receipt Date: 20140328
  Transmission Date: 20141002
  Serious: Yes (Other)
  Sender: FDA-Public Use
  Company Number: None

PATIENT
  Age: 54 Year
  Sex: Male

DRUGS (9)
  1. IMBRUVICA [Suspect]
     Route: 048
     Dates: start: 20140302
  2. XARELTO [Concomitant]
  3. TRAMADOL [Concomitant]
  4. PREDNISONE [Concomitant]
  5. ZOFRAN [Concomitant]
  6. RITALIN [Concomitant]
  7. SUMATRIPTAN [Concomitant]
  8. PLASMAPHORESIA [Concomitant]
  9. ALBUMIN [Concomitant]

REACTIONS (2)
  - Atrial fibrillation [None]
  - Orthostatic hypotension [None]
